FAERS Safety Report 14202882 (Version 1)
Quarter: 2017Q4

REPORT INFORMATION
  Report Type: Spontaneous
  Country: US (occurrence: None)
  Receive Date: 20171116
  Receipt Date: 20171116
  Transmission Date: 20180321
  Serious: No
  Sender: FDA-Public Use
  Company Number: None

PATIENT
  Sex: Female

DRUGS (1)
  1. HUMIRA [Suspect]
     Active Substance: ADALIMUMAB
     Route: 058
     Dates: start: 20170315

REACTIONS (7)
  - Ocular hyperaemia [None]
  - Sinus congestion [None]
  - Swelling [None]
  - Infection [None]
  - Eye irrigation [None]
  - Secretion discharge [None]
  - Facial pain [None]
